FAERS Safety Report 5454258-0 (Version None)
Quarter: 2007Q3

REPORT INFORMATION
  Report Type: 
  Country: None (occurrence: None)
  Receive Date: 20070803
  Receipt Date: 20061024
  Transmission Date: 20080115
  Serious: Yes (Other)
  Sender: FDA-Public Use
  Company Number: 2006SP004721

PATIENT
  Age: 33 Year

DRUGS (1)
  1. INTRON A [Suspect]
     Indication: HEPATITIS C
     Dates: start: 19960101

REACTIONS (1)
  - SUICIDAL IDEATION [None]
